FAERS Safety Report 4681724-8 (Version None)
Quarter: 2005Q2

REPORT INFORMATION
  Report Type: 
  Country: None (occurrence: None)
  Receive Date: 20050603
  Receipt Date: 20050310
  Transmission Date: 20051028
  Serious: Yes (Hospitalization, Disabling, Other)
  Sender: FDA-Public Use
  Company Number: US-MERCK-0503USA01890

PATIENT
  Age: 51 Year
  Sex: Male

DRUGS (7)
  1. VIOXX [Suspect]
     Indication: ARTHRALGIA
     Route: 048
     Dates: start: 19990901, end: 20030101
  2. ASPIRIN [Concomitant]
     Indication: CARDIAC DISORDER
     Route: 065
  3. LASIX [Concomitant]
     Indication: HYPERTENSION
     Route: 065
     Dates: start: 19990101
  4. LASIX [Concomitant]
     Indication: OEDEMA
     Route: 065
     Dates: start: 19990101
  5. PLAVIX [Concomitant]
     Indication: CORONARY ARTERIAL STENT INSERTION
     Route: 065
     Dates: start: 19990101
  6. LIPITOR [Concomitant]
     Indication: BLOOD CHOLESTEROL INCREASED
     Route: 065
     Dates: start: 19990101
  7. [THERAPY UNSPECIFIED] [Concomitant]
     Indication: HYPERTENSION
     Route: 065

REACTIONS (6)
  - CAROTID ARTERY DISEASE [None]
  - CEREBROVASCULAR ACCIDENT [None]
  - EMOTIONAL DISTRESS [None]
  - NEPHROLITHIASIS [None]
  - OVERDOSE [None]
  - TRANSIENT ISCHAEMIC ATTACK [None]
